FAERS Safety Report 13221902 (Version 2)
Quarter: 2017Q1

REPORT INFORMATION
  Report Type: Report from Study
  Country: BR (occurrence: BR)
  Receive Date: 20170211
  Receipt Date: 20170315
  Transmission Date: 20170428
  Serious: Yes (Other)
  Sender: FDA-Public Use
  Company Number: BR-BIOGEN-2017BI00343513

PATIENT
  Sex: Female

DRUGS (1)
  1. AVONEX [Suspect]
     Active Substance: INTERFERON BETA-1A
     Indication: MULTIPLE SCLEROSIS
     Route: 030
     Dates: start: 201202, end: 201701

REACTIONS (8)
  - Emotional distress [Recovered/Resolved]
  - Multiple sclerosis relapse [Not Recovered/Not Resolved]
  - Drug resistance [Unknown]
  - Malaise [Recovered/Resolved]
  - Cerebral disorder [Not Recovered/Not Resolved]
  - Anxiety [Unknown]
  - Pyrexia [Recovered/Resolved]
  - Cerebral atrophy [Not Recovered/Not Resolved]
